FAERS Safety Report 6948899-9 (Version None)
Quarter: 2010Q3

REPORT INFORMATION
  Report Type: 
  Country: None (occurrence: None)
  Receive Date: 20100828
  Receipt Date: 20091130
  Transmission Date: 20110219
  Serious: No
  Sender: FDA-Public Use
  Company Number: US-ABBOTT-09P-163-0611637-00

PATIENT
  Sex: Male
  Weight: 102.6 kg

DRUGS (10)
  1. NIASPAN [Suspect]
     Indication: BLOOD CHOLESTEROL INCREASED
     Route: 048
     Dates: start: 20081201, end: 20090701
  2. NIASPAN [Suspect]
     Route: 048
     Dates: start: 20090801
  3. GLUCOPHAGE [Concomitant]
     Indication: DIABETES MELLITUS
     Route: 048
  4. SYNTHROID [Concomitant]
     Indication: HYPOTHYROIDISM
     Route: 048
     Dates: start: 20050101
  5. TRILIPIX [Concomitant]
     Indication: LDL/HDL RATIO
     Route: 048
  6. PLAVIX [Concomitant]
     Indication: MYOCARDIAL INFARCTION
     Route: 048
  7. PLAVIX [Concomitant]
     Indication: CORONARY ARTERIAL STENT INSERTION
  8. TOPROL-XL [Concomitant]
     Indication: HYPERTENSION
     Route: 048
  9. LISINOPRIL [Concomitant]
     Indication: HYPERTENSION
     Route: 048
  10. ZOCOR [Concomitant]
     Indication: LDL/HDL RATIO
     Route: 048

REACTIONS (3)
  - FLUSHING [None]
  - NIGHT SWEATS [None]
  - PRURITUS [None]
